FAERS Safety Report 8282419-4 (Version None)
Quarter: 2012Q2

REPORT INFORMATION
  Report Type: 
  Country: None (occurrence: None)
  Receive Date: 20120413
  Receipt Date: 20120409
  Transmission Date: 20120825
  Serious: Yes (Disabling)
  Sender: FDA-Public Use
  Company Number: US-ABBOTT-12P-163-0923650-00

PATIENT
  Sex: Female
  Weight: 95.34 kg

DRUGS (10)
  1. GABAPENTIN [Concomitant]
     Indication: PRODUCT USED FOR UNKNOWN INDICATION
     Dates: start: 20100401
  2. PREDNISONE [Suspect]
     Indication: AUTOIMMUNE DISORDER
     Dosage: PATIENT HAS WEANED DOWN FROM 60 MG DAILY
     Dates: start: 20090101
  3. HUMIRA [Suspect]
     Indication: PSORIATIC ARTHROPATHY
     Dates: start: 20090414, end: 20111101
  4. HUMIRA [Suspect]
     Indication: ANKYLOSING SPONDYLITIS
  5. HUMIRA [Suspect]
     Indication: PSORIASIS
  6. SERTRALINE HYDROCHLORIDE [Concomitant]
     Indication: PRODUCT USED FOR UNKNOWN INDICATION
  7. ZOFRAN [Concomitant]
     Indication: NAUSEA
     Dosage: TWICE DAILY AS NEEDED
     Dates: start: 20100901
  8. OXYCODONE HCL [Concomitant]
     Indication: PRODUCT USED FOR UNKNOWN INDICATION
  9. FENTANYL [Concomitant]
     Indication: PRODUCT USED FOR UNKNOWN INDICATION
     Dosage: TOPICAL PATCH, 1 IN 48 HOURS
  10. SOLU-MEDROL [Concomitant]
     Indication: PRODUCT USED FOR UNKNOWN INDICATION
     Dates: start: 20100601, end: 20110101

REACTIONS (18)
  - SWELLING FACE [None]
  - TOOTH ABSCESS [None]
  - OEDEMA [None]
  - MOBILITY DECREASED [None]
  - WEIGHT INCREASED [None]
  - DECREASED APPETITE [None]
  - MESENTERIC PANNICULITIS [None]
  - WEIGHT DECREASED [None]
  - ABDOMINAL DISTENSION [None]
  - NAUSEA [None]
  - ARTHRALGIA [None]
  - ABDOMINAL PAIN UPPER [None]
  - SKIN BURNING SENSATION [None]
  - GENERALISED OEDEMA [None]
  - TOOTH LOSS [None]
  - PAIN [None]
  - THERAPEUTIC RESPONSE UNEXPECTED [None]
  - MALABSORPTION [None]
